FAERS Safety Report 8875477 (Version 1)
Quarter: 2012Q4

REPORT INFORMATION
  Report Type: Report from Study
  Country: US (occurrence: AU)
  Receive Date: 20121030
  Receipt Date: 20121030
  Transmission Date: 20130627
  Serious: No
  Sender: FDA-Public Use
  Company Number: US-ABBOTT-11P-163-0883747-00

PATIENT
  Age: 35 Year
  Sex: Female

DRUGS (2)
  1. KALETRA TABLETS [Suspect]
     Indication: ANTIRETROVIRAL THERAPY
     Dosage: 4 tablets daily
     Route: 048
     Dates: start: 20111125
  2. EPZICOM [Suspect]
     Indication: ANTIRETROVIRAL THERAPY
     Dosage: 1 tab/cap daily
     Dates: start: 20111125

REACTIONS (3)
  - Liver function test abnormal [Unknown]
  - Pyonephrosis [Unknown]
  - Breech delivery [Unknown]
